FAERS Safety Report 9219877 (Version 1)
Quarter: 2013Q2

REPORT INFORMATION
  Report Type: Spontaneous
  Country: US (occurrence: None)
  Receive Date: 20130408
  Receipt Date: 20130408
  Transmission Date: 20140414
  Serious: Yes (Other)
  Sender: FDA-Public Use
  Company Number: None

PATIENT
  Age: 22 Year
  Sex: Female
  Weight: 58.97 kg

DRUGS (2)
  1. CYMBALTA [Suspect]
  2. MELOXICAM [Concomitant]

REACTIONS (3)
  - Loss of employment [None]
  - Drug withdrawal syndrome [None]
  - Paraesthesia [None]
